FAERS Safety Report 5396877-6 (Version None)
Quarter: 2007Q3

REPORT INFORMATION
  Report Type: 
  Country: None (occurrence: None)
  Receive Date: 20070723
  Receipt Date: 20070716
  Transmission Date: 20080115
  Serious: Yes (Other)
  Sender: FDA-Public Use
  Company Number: SP01315

PATIENT
  Age: 54 Year
  Sex: Female
  Weight: 68.0396 kg

DRUGS (1)
  1. OSMOPREP [Suspect]
     Indication: COLONOSCOPY
     Dosage: 48 GM, ORAL
     Route: 048
     Dates: start: 20070712, end: 20070712

REACTIONS (5)
  - BLOOD POTASSIUM DECREASED [None]
  - CONVULSION [None]
  - HEAD INJURY [None]
  - RESPIRATORY ARREST [None]
  - VOMITING [None]
